FAERS Safety Report 5643301-1 (Version None)
Quarter: 2008Q1

REPORT INFORMATION
  Report Type: 
  Country: None (occurrence: None)
  Receive Date: 20080228
  Receipt Date: 20080212
  Transmission Date: 20080703
  Serious: Yes (Other)
  Sender: FDA-Public Use
  Company Number: DE-ASTRAZENECA-2008SE01042

PATIENT
  Sex: Male

DRUGS (4)
  1. BELOC-ZOK COMP [Suspect]
     Indication: HYPERTENSION
     Dosage: 95+12.5 MG TABLET
     Route: 048
     Dates: start: 19991201
  2. BELOC-ZOK COMP [Suspect]
     Indication: ANXIETY
     Dosage: 95+12.5 MG TABLET
     Route: 048
     Dates: start: 19991201
  3. ASPIRIN [Concomitant]
     Indication: CEREBELLAR INFARCTION
     Route: 048
  4. NORMOC [Concomitant]
     Indication: ANXIETY
     Dosage: 1 TABLET DAILY
     Route: 048

REACTIONS (9)
  - ALOPECIA [None]
  - ANXIETY [None]
  - DYSPNOEA EXERTIONAL [None]
  - HYPERTENSION [None]
  - OBSTRUCTIVE AIRWAYS DISORDER [None]
  - PARAESTHESIA [None]
  - RASH [None]
  - TACHYCARDIA PAROXYSMAL [None]
  - THROAT TIGHTNESS [None]
